FAERS Safety Report 4797267-7 (Version None)
Quarter: 2005Q4

REPORT INFORMATION
  Report Type: 
  Country: None (occurrence: None)
  Receive Date: 20051011
  Receipt Date: 20051011
  Transmission Date: 20060501
  Serious: Yes (Hospitalization)
  Sender: FDA-Public Use
  Company Number: None

PATIENT
  Sex: Female

DRUGS (1)
  1. PROMETHAZINE [Suspect]
     Indication: NAUSEA
     Dosage: 25 MG IV
     Dates: start: 20050724

REACTIONS (6)
  - AGITATION [None]
  - ANXIETY [None]
  - BLOOD PRESSURE IMMEASURABLE [None]
  - HYPERHIDROSIS [None]
  - RESPIRATORY RATE INCREASED [None]
  - RESTLESSNESS [None]
